FAERS Safety Report 7432378-9 (Version None)
Quarter: 2011Q2

REPORT INFORMATION
  Report Type: 
  Country: None (occurrence: None)
  Receive Date: 20110422
  Receipt Date: 20110419
  Transmission Date: 20111010
  Serious: Yes (Other)
  Sender: FDA-Public Use
  Company Number: US-PFIZER INC-2011086364

PATIENT
  Sex: Female

DRUGS (2)
  1. LYRICA [Suspect]
     Dosage: UNK
     Dates: start: 20110419
  2. NEURONTIN [Suspect]
     Dosage: UNK
     Dates: start: 20110419

REACTIONS (2)
  - BIPOLAR DISORDER [None]
  - MOOD SWINGS [None]
